FAERS Safety Report 25017878 (Version 3)
Quarter: 2025Q2

REPORT INFORMATION
  Report Type: Spontaneous
  Country: CA (occurrence: CA)
  Receive Date: 20250227
  Receipt Date: 20250428
  Transmission Date: 20250716
  Serious: Yes (Hospitalization)
  Sender: PFIZER
  Company Number: CA-PFIZER INC-202400294602

PATIENT
  Age: 48 Year
  Sex: Female

DRUGS (1)
  1. ABRILADA [Suspect]
     Active Substance: ADALIMUMAB-AFZB
     Indication: Psoriatic arthropathy
     Route: 058
     Dates: start: 20241030

REACTIONS (9)
  - Tinnitus [Not Recovered/Not Resolved]
  - Erythema [Recovering/Resolving]
  - Throat tightness [Not Recovered/Not Resolved]
  - Swelling [Not Recovered/Not Resolved]
  - Ear disorder [Not Recovered/Not Resolved]
  - Pruritus [Unknown]
  - Hypersensitivity [Unknown]
  - Pharyngeal paraesthesia [Unknown]
  - Skin plaque [Recovering/Resolving]

NARRATIVE: CASE EVENT DATE: 20241101
